FAERS Safety Report 5859976-8 (Version None)
Quarter: 2008Q3

REPORT INFORMATION
  Report Type: 
  Country: None (occurrence: None)
  Receive Date: 20080827
  Receipt Date: 20080819
  Transmission Date: 20090109
  Serious: Yes (Other)
  Sender: FDA-Public Use
  Company Number: US-ELI_LILLY_AND_COMPANY-US200807004113

PATIENT
  Sex: Female

DRUGS (1)
  1. HUMATROPE [Suspect]
     Indication: GROWTH HORMONE DEFICIENCY
     Dosage: UNK, UNKNOWN
     Dates: start: 20040601, end: 20080717

REACTIONS (1)
  - ASTROCYTOMA [None]
